FAERS Safety Report 7760851-2 (Version None)
Quarter: 2011Q3

REPORT INFORMATION
  Report Type: 
  Country: None (occurrence: None)
  Receive Date: 20110919
  Receipt Date: 20110915
  Transmission Date: 20111222
  Serious: Yes (Other)
  Sender: FDA-Public Use
  Company Number: US-PFIZER INC-2011208252

PATIENT
  Sex: Male
  Weight: 88.889 kg

DRUGS (6)
  1. VICODIN ES [Concomitant]
     Indication: MUSCULOSKELETAL PAIN
     Dosage: UNK
     Route: 048
  2. LISINOPRIL [Concomitant]
     Dosage: 10 MG, UNK
     Route: 048
  3. VICODIN ES [Concomitant]
     Indication: PAIN IN EXTREMITY
  4. AMANTADINE [Concomitant]
     Dosage: 100 MG, UNK
     Route: 048
  5. SUTENT [Suspect]
     Dosage: 50 MG, 1X/DAY
     Route: 048
     Dates: start: 20100401
  6. CIPROFLOXACIN [Concomitant]
     Dosage: 500 MG, UNK
     Route: 048

REACTIONS (3)
  - PARAESTHESIA [None]
  - CEREBROVASCULAR ACCIDENT [None]
  - HYPOAESTHESIA [None]
